FAERS Safety Report 6250271-4 (Version None)
Quarter: 2009Q2

REPORT INFORMATION
  Report Type: 
  Country: None (occurrence: None)
  Receive Date: 20090629
  Receipt Date: 20090629
  Transmission Date: 20091009
  Serious: No
  Sender: FDA-Public Use
  Company Number: None

PATIENT
  Age: 82 Year
  Sex: Male
  Weight: 80 kg

DRUGS (7)
  1. ZOSYN [Suspect]
     Indication: PNEUMONIA
     Dosage: 3.375 GM Q6H IV
     Route: 042
     Dates: start: 20090622, end: 20090624
  2. MORPHINE [Concomitant]
  3. NORCO [Concomitant]
  4. RESTORIL [Concomitant]
  5. XANAX [Concomitant]
  6. TYLENOL (CAPLET) [Concomitant]
  7. ZOFRAN [Concomitant]

REACTIONS (2)
  - PRURITUS [None]
  - RASH [None]
